FAERS Safety Report 7556547-2 (Version None)
Quarter: 2011Q2

REPORT INFORMATION
  Report Type: 
  Country: None (occurrence: None)
  Receive Date: 20110610
  Receipt Date: 20110531
  Transmission Date: 20111010
  Serious: Yes (Hospitalization)
  Sender: FDA-Public Use
  Company Number: WAES 0904USA02889

PATIENT
  Age: 69 Year
  Sex: Male

DRUGS (15)
  1. CAP VORINOSTAT [Suspect]
     Indication: MULTIPLE MYELOMA
     Dosage: 400 MG/DAILY 200 MG/DAILY
     Route: 048
     Dates: start: 20090622
  2. CAP VORINOSTAT [Suspect]
     Indication: MULTIPLE MYELOMA
     Dosage: 400 MG/DAILY 200 MG/DAILY
     Route: 048
     Dates: start: 20090330
  3. CAP VORINOSTAT [Suspect]
     Indication: MULTIPLE MYELOMA
     Dosage: 400 MG/DAILY 200 MG/DAILY
     Route: 048
     Dates: start: 20090427
  4. CAP VORINOSTAT [Suspect]
     Indication: MULTIPLE MYELOMA
     Dosage: 400 MG/DAILY 200 MG/DAILY
     Route: 048
     Dates: start: 20090515, end: 20090602
  5. CAP VORINOSTAT [Suspect]
     Indication: MULTIPLE MYELOMA
     Dosage: 400 MG/DAILY 200 MG/DAILY
     Route: 048
     Dates: start: 20090608
  6. ASPIRIN [Concomitant]
  7. REDOMEX [Concomitant]
  8. ZOVIRAX [Concomitant]
  9. AMLODIPINE [Concomitant]
  10. LAXOBERON [Concomitant]
  11. VELCADE [Suspect]
     Indication: MULTIPLE MYELOMA
     Dosage: 2.29 MG/M[2] 1.0 MG/M[2] 0.7 MG/M[2]
     Route: 042
     Dates: start: 20090330
  12. VELCADE [Suspect]
     Indication: MULTIPLE MYELOMA
     Dosage: 2.29 MG/M[2] 1.0 MG/M[2] 0.7 MG/M[2]
     Route: 042
     Dates: start: 20090427
  13. VELCADE [Suspect]
     Indication: MULTIPLE MYELOMA
     Dosage: 2.29 MG/M[2] 1.0 MG/M[2] 0.7 MG/M[2]
     Route: 042
     Dates: start: 20090515, end: 20090602
  14. VELCADE [Suspect]
     Indication: MULTIPLE MYELOMA
     Dosage: 2.29 MG/M[2] 1.0 MG/M[2] 0.7 MG/M[2]
     Route: 042
     Dates: start: 20090608
  15. VFEND [Concomitant]

REACTIONS (15)
  - HYPERGLYCAEMIA [None]
  - HYPOKALAEMIA [None]
  - HAEMATOMA [None]
  - ANAEMIA [None]
  - LEUKOPENIA [None]
  - WOUND [None]
  - ASTHENIA [None]
  - MUSCULAR WEAKNESS [None]
  - THROMBOCYTOPENIA [None]
  - INSOMNIA [None]
  - FALL [None]
  - OEDEMA PERIPHERAL [None]
  - HYPOVOLAEMIA [None]
  - RENAL FAILURE ACUTE [None]
  - DIARRHOEA [None]
